FAERS Safety Report 20475262 (Version 1)
Quarter: 2022Q1

REPORT INFORMATION
  Report Type: Spontaneous
  Country: US (occurrence: None)
  Receive Date: 20220214
  Receipt Date: 20220214
  Transmission Date: 20220423
  Serious: Yes (Hospitalization)
  Sender: FDA-Public Use
  Company Number: None

PATIENT
  Age: 57 Year
  Sex: Male
  Weight: 86 kg

DRUGS (1)
  1. PHENYTOIN [Suspect]
     Active Substance: PHENYTOIN
     Indication: Seizure
     Dosage: FREQUENCY : TWICE A DAY;?
     Route: 048
     Dates: start: 20200501, end: 20211216

REACTIONS (10)
  - Asthenia [None]
  - Vomiting [None]
  - Pain in extremity [None]
  - Fall [None]
  - Seizure [None]
  - Ataxia [None]
  - Nausea [None]
  - Dizziness [None]
  - Tinnitus [None]
  - Toxicity to various agents [None]

NARRATIVE: CASE EVENT DATE: 20211216
